FAERS Safety Report 9919460 (Version 1)
Quarter: 2014Q1

REPORT INFORMATION
  Report Type: Spontaneous
  Country: DE (occurrence: DE)
  Receive Date: 20140224
  Receipt Date: 20140224
  Transmission Date: 20141002
  Serious: Yes (Hospitalization)
  Sender: FDA-Public Use
  Company Number: DE-PFIZER INC-2014047316

PATIENT
  Age: 65 Year
  Sex: Female

DRUGS (2)
  1. LYRICA [Suspect]
     Dosage: 75 MG, UNK
     Route: 048
     Dates: start: 2013
  2. LYRICA [Suspect]
     Dosage: 100 MG, UNK
     Route: 048
     Dates: start: 2013

REACTIONS (3)
  - Swelling face [Unknown]
  - Pharyngeal oedema [Unknown]
  - Swollen tongue [Unknown]
